FAERS Safety Report 10507375 (Version 1)
Quarter: 2014Q4

REPORT INFORMATION
  Report Type: Spontaneous
  Country: US (occurrence: None)
  Receive Date: 20141008
  Receipt Date: 20141008
  Transmission Date: 20150528
  Serious: Yes (Hospitalization)
  Sender: FDA-Public Use
  Company Number: None

PATIENT
  Age: 55 Year
  Sex: Female
  Weight: 67 kg

DRUGS (1)
  1. CISPLATIN. [Suspect]
     Active Substance: CISPLATIN

REACTIONS (9)
  - Seizure [None]
  - Vomiting [None]
  - Loss of consciousness [None]
  - Nausea [None]
  - Urinary incontinence [None]
  - Constipation [None]
  - Dehydration [None]
  - Dizziness [None]
  - Deep vein thrombosis [None]

NARRATIVE: CASE EVENT DATE: 20140823
